FAERS Safety Report 6301174-8 (Version None)
Quarter: 2009Q3

REPORT INFORMATION
  Report Type: 
  Country: None (occurrence: None)
  Receive Date: 20090807
  Receipt Date: 20090723
  Transmission Date: 20100115
  Serious: Yes (Hospitalization)
  Sender: FDA-Public Use
  Company Number: PHHO2009PL09198

PATIENT
  Sex: Female
  Weight: 105 kg

DRUGS (3)
  1. BLINDED ACZ885 ACZ+ [Suspect]
     Indication: GOUT
     Dosage: BLINDED
     Dates: start: 20090526
  2. BLINDED NO TREATMENT RECEIVED NOMED [Suspect]
     Indication: GOUT
     Dosage: BLINDED
     Dates: start: 20090526
  3. BLINDED TRIAMCINOLONE ACETONIDE COMP-TRI+ [Suspect]
     Indication: GOUT
     Dosage: BLINDED
     Dates: start: 20090526

REACTIONS (6)
  - BRONCHITIS [None]
  - COUGH [None]
  - DYSPNOEA [None]
  - LEUKOCYTOSIS [None]
  - PRODUCTIVE COUGH [None]
  - SPUTUM PURULENT [None]
